FAERS Safety Report 17284507 (Version 1)
Quarter: 2020Q1

REPORT INFORMATION
  Report Type: Spontaneous
  Country: US (occurrence: US)
  Receive Date: 20200117
  Receipt Date: 20200117
  Transmission Date: 20200409
  Serious: Yes (Hospitalization)
  Sender: FDA-Public Use
  Company Number: US-VERTEX PHARMACEUTICALS-2020-000635

PATIENT
  Age: 25 Year
  Sex: Female

DRUGS (9)
  1. PULMOZYME [Concomitant]
     Active Substance: DORNASE ALFA
  2. VITAMIN D2 [Concomitant]
     Active Substance: ERGOCALCIFEROL
  3. SODIUM CHLORIDE. [Concomitant]
     Active Substance: SODIUM CHLORIDE
  4. SYMDEKO [Suspect]
     Active Substance: IVACAFTOR\TEZACAFTOR
     Indication: CYSTIC FIBROSIS
     Dosage: 1 TABLET OF TEZACAFTOR 100 MG, IVACAFTOR 150 MG AM; 1 TABLET OF IVACFTOR  150 MG PM
     Route: 048
     Dates: start: 201902
  5. URSODIOL. [Concomitant]
     Active Substance: URSODIOL
  6. VITAMIN D3 [Concomitant]
     Active Substance: CHOLECALCIFEROL
  7. ZENPEP [Concomitant]
     Active Substance: PANCRELIPASE AMYLASE\PANCRELIPASE LIPASE\PANCRELIPASE PROTEASE
  8. ELIQUIS [Concomitant]
     Active Substance: APIXABAN
  9. VITAMIN C [Concomitant]
     Active Substance: ASCORBIC ACID

REACTIONS (1)
  - Pulmonary function test decreased [Unknown]

NARRATIVE: CASE EVENT DATE: 20200104
